FAERS Safety Report 11590389 (Version 1)
Quarter: 2015Q4

REPORT INFORMATION
  Report Type: Spontaneous
  Country: US (occurrence: US)
  Receive Date: 20151002
  Receipt Date: 20151002
  Transmission Date: 20160304
  Serious: No
  Sender: FDA-Public Use
  Company Number: US-GLAXOSMITHKLINE-US2015139205

PATIENT
  Age: 77 Year
  Sex: Female

DRUGS (7)
  1. VENTOLIN HFA [Suspect]
     Active Substance: ALBUTEROL SULFATE
     Indication: ASTHMA
  2. FAMOTIDINE. [Concomitant]
     Active Substance: FAMOTIDINE
  3. VENTOLIN HFA [Suspect]
     Active Substance: ALBUTEROL SULFATE
     Indication: EMPHYSEMA
  4. MUCINEX [Concomitant]
     Active Substance: GUAIFENESIN
  5. VENTOLIN HFA [Suspect]
     Active Substance: ALBUTEROL SULFATE
     Indication: CHRONIC OBSTRUCTIVE PULMONARY DISEASE
     Dosage: 2 PUFF(S), PRN
     Route: 055
     Dates: start: 2013
  6. OMEPRAZOLE. [Concomitant]
     Active Substance: OMEPRAZOLE
  7. OXYGEN. [Concomitant]
     Active Substance: OXYGEN

REACTIONS (8)
  - Dyspnoea [Not Recovered/Not Resolved]
  - Dysphonia [Recovered/Resolved]
  - Nasopharyngitis [Recovering/Resolving]
  - Device use error [Unknown]
  - Facial pain [Recovered/Resolved]
  - Neck pain [Recovered/Resolved]
  - Wheezing [Not Recovered/Not Resolved]
  - Rhinorrhoea [Recovered/Resolved]

NARRATIVE: CASE EVENT DATE: 20150909
